FAERS Safety Report 10462900 (Version 1)
Quarter: 2014Q3

REPORT INFORMATION
  Report Type: Spontaneous
  Country: BR (occurrence: BR)
  Receive Date: 20140918
  Receipt Date: 20140918
  Transmission Date: 20150326
  Serious: Yes (Hospitalization)
  Sender: FDA-Public Use
  Company Number: BR-ASTRAZENECA-2014SE69611

PATIENT
  Age: 65 Year
  Sex: Male
  Weight: 75 kg

DRUGS (15)
  1. BRILINTA [Suspect]
     Active Substance: TICAGRELOR
     Indication: MYOCARDIAL INFARCTION
     Route: 048
     Dates: start: 201407
  2. TAMSULOSIN [Concomitant]
     Active Substance: TAMSULOSIN
  3. BESILAPIN [Concomitant]
  4. ATORVASTATIN [Concomitant]
     Active Substance: ATORVASTATIN
  5. SEREITDE [Concomitant]
  6. LIPITOR [Concomitant]
     Active Substance: ATORVASTATIN CALCIUM
  7. ARTROLIVE [Concomitant]
     Active Substance: CHONDROITIN SULFATE (BOVINE)\GLUCOSAMINE SULFATE
  8. DUTASTERIDE [Concomitant]
     Active Substance: DUTASTERIDE
  9. ALOPURINOL [Concomitant]
     Active Substance: ALLOPURINOL
  10. ATENOLOL. [Suspect]
     Active Substance: ATENOLOL
     Route: 048
  11. OMEPRAZOLE. [Suspect]
     Active Substance: OMEPRAZOLE
     Route: 048
  12. MONOCORDIL [Concomitant]
     Active Substance: ISOSORBIDE MONONITRATE
  13. ASA [Concomitant]
     Active Substance: ASPIRIN
  14. LEVOTHYROXINE [Concomitant]
     Active Substance: LEVOTHYROXINE
  15. LOSARTAN [Concomitant]
     Active Substance: LOSARTAN

REACTIONS (2)
  - Myocardial infarction [Recovered/Resolved]
  - Drug hypersensitivity [Not Recovered/Not Resolved]

NARRATIVE: CASE EVENT DATE: 2002
